FAERS Safety Report 7579683-3 (Version None)
Quarter: 2011Q2

REPORT INFORMATION
  Report Type: 
  Country: None (occurrence: None)
  Receive Date: 20110629
  Receipt Date: 20110615
  Transmission Date: 20111010
  Serious: Yes (Other)
  Sender: FDA-Public Use
  Company Number: US-BAYER-201017763NA

PATIENT
  Age: 44 Year
  Sex: Female
  Weight: 95.238 kg

DRUGS (10)
  1. BUPROPION HCL [Concomitant]
     Indication: ANXIETY
     Dosage: UNK
     Dates: start: 20040101
  2. PATANOL [Concomitant]
     Indication: MULTIPLE ALLERGIES
     Dosage: UNK
     Dates: start: 20060701, end: 20080501
  3. ALLEGRA [Concomitant]
     Indication: MULTIPLE ALLERGIES
     Dosage: UNK
     Dates: start: 20040101, end: 20050301
  4. FEXOFENADINE [Concomitant]
     Indication: MULTIPLE ALLERGIES
     Dosage: UNK
     Dates: start: 20071201, end: 20081101
  5. LIDEX [Concomitant]
  6. FLUTICASONE PROPIONATE [Concomitant]
     Indication: MULTIPLE ALLERGIES
     Dosage: UNK
     Dates: start: 20060501, end: 20081101
  7. YASMIN [Suspect]
     Indication: ORAL CONTRACEPTION
     Route: 048
     Dates: start: 20030601, end: 20080417
  8. MULTI-VITAMINS [Concomitant]
  9. LEXAPRO [Concomitant]
     Indication: DEPRESSION
  10. FLONASE [Concomitant]
     Indication: MULTIPLE ALLERGIES
     Dosage: UNK
     Dates: start: 20040101, end: 20060101

REACTIONS (3)
  - ANTIPHOSPHOLIPID SYNDROME [None]
  - DEEP VEIN THROMBOSIS [None]
  - PAIN IN EXTREMITY [None]
